FAERS Safety Report 5755294-7 (Version None)
Quarter: 2008Q2

REPORT INFORMATION
  Report Type: 
  Country: None (occurrence: None)
  Receive Date: 20080529
  Receipt Date: 20080414
  Transmission Date: 20081010
  Serious: Yes (Other)
  Sender: FDA-Public Use
  Company Number: B0521505A

PATIENT
  Sex: 0

DRUGS (1)
  1. ORLISTAT (FORMULATION UNKNOWN) (ORLISTAT) [Suspect]
     Indication: OBESITY

REACTIONS (1)
  - HEPATIC FUNCTION ABNORMAL [None]
